FAERS Safety Report 5616600-7 (Version None)
Quarter: 2008Q1

REPORT INFORMATION
  Report Type: 
  Country: None (occurrence: None)
  Receive Date: 20080207
  Receipt Date: 20070907
  Transmission Date: 20080703
  Serious: No
  Sender: FDA-Public Use
  Company Number: A0679679A

PATIENT
  Age: 20 Year
  Sex: Female

DRUGS (3)
  1. PAXIL CR [Suspect]
     Indication: DEPRESSION
     Dosage: 25MG PER DAY
     Route: 048
     Dates: start: 20070801
  2. MIDOL [Suspect]
     Indication: MENSTRUAL DISCOMFORT
     Route: 065
     Dates: start: 20070905
  3. LOESTRIN [Concomitant]

REACTIONS (2)
  - FEELING ABNORMAL [None]
  - LETHARGY [None]
